FAERS Safety Report 7792511-6 (Version None)
Quarter: 2011Q4

REPORT INFORMATION
  Report Type: 
  Country: None (occurrence: None)
  Receive Date: 20111003
  Receipt Date: 20110922
  Transmission Date: 20120403
  Serious: Yes (Other)
  Sender: FDA-Public Use
  Company Number: CA-JNJFOC-20110511863

PATIENT
  Sex: Female
  Weight: 63 kg

DRUGS (5)
  1. REMICADE [Suspect]
     Indication: CROHN'S DISEASE
     Route: 042
     Dates: start: 20100501
  2. RABEPRAZOLE SODIUM [Concomitant]
     Route: 048
  3. ASACOL [Concomitant]
     Route: 048
  4. IMURAN [Concomitant]
     Route: 048
  5. CELEXA [Concomitant]
     Route: 048

REACTIONS (2)
  - LOWER EXTREMITY MASS [None]
  - BASAL CELL CARCINOMA [None]
